FAERS Safety Report 6817881 (Version 1)
Quarter: 2020Q3

REPORT INFORMATION
  Report Type: Report from Study
  Country: US (occurrence: US)
  Receive Date: 20081121
  Receipt Date: 20081121
  Transmission Date: 20201105
  Serious: Yes (Hospitalization)
  Sender: FDA-Public Use
  Company Number: US-ROCHE-596605

PATIENT
  Age: 83 Year
  Sex: Female

DRUGS (6)
  1. NEXIUM [Concomitant]
     Active Substance: ESOMEPRAZOLE MAGNESIUM
  2. MECILLIN [Concomitant]
     Dosage: DRUG REPORTED: MECILICIN
  3. IBANDRONIC ACID. [Suspect]
     Active Substance: IBANDRONIC ACID
     Indication: OSTEOPOROSIS
     Route: 065
     Dates: start: 200806
  4. NORVASC [Concomitant]
     Active Substance: AMLODIPINE BESYLATE
  5. AGGRENOX [Concomitant]
     Active Substance: ASPIRIN\DIPYRIDAMOLE
  6. ARIMIDEX [Concomitant]
     Active Substance: ANASTROZOLE
     Dosage: DRUG REPORTED: ARIMEDEX

REACTIONS (1)
  - Transient ischaemic attack [Unknown]

NARRATIVE: CASE EVENT DATE: 20081106
